FAERS Safety Report 5070719-0 (Version None)
Quarter: 2006Q3

REPORT INFORMATION
  Report Type: 
  Country: None (occurrence: None)
  Receive Date: 20060804
  Receipt Date: 20051018
  Transmission Date: 20061208
  Serious: No
  Sender: FDA-Public Use
  Company Number: US-GLAXOSMITHKLINE-A0578610A

PATIENT
  Age: 48 Year
  Sex: Male
  Weight: 113 kg

DRUGS (4)
  1. NICORETTE [Suspect]
  2. VERAPAMIL [Concomitant]
  3. VITAMIN [Concomitant]
  4. VITAMIN E [Concomitant]

REACTIONS (2)
  - DRUG ABUSER [None]
  - INTENTIONAL DRUG MISUSE [None]
